FAERS Safety Report 6842309-8 (Version None)
Quarter: 2010Q3

REPORT INFORMATION
  Report Type: 
  Country: None (occurrence: None)
  Receive Date: 20100714
  Receipt Date: 20070724
  Transmission Date: 20110219
  Serious: No
  Sender: FDA-Public Use
  Company Number: US-PFIZER INC-2007062565

PATIENT
  Sex: Male
  Weight: 104 kg

DRUGS (4)
  1. CHANTIX [Suspect]
     Indication: SMOKING CESSATION THERAPY
     Dates: start: 20070416, end: 20070501
  2. ACCUPRIL [Concomitant]
  3. VYTORIN [Concomitant]
  4. NEXIUM [Concomitant]

REACTIONS (1)
  - FATIGUE [None]
